FAERS Safety Report 5730337-5 (Version None)
Quarter: 2008Q2

REPORT INFORMATION
  Report Type: 
  Country: None (occurrence: None)
  Receive Date: 20080505
  Receipt Date: 20080505
  Transmission Date: 20081010
  Serious: Yes (Other)
  Sender: FDA-Public Use
  Company Number: None

PATIENT
  Age: 29 Year
  Sex: Female
  Weight: 68.0396 kg

DRUGS (2)
  1. LEVAQUIN [Suspect]
     Indication: SINUSITIS
     Dates: start: 20070701, end: 20070714
  2. LEVAQUIN [Suspect]
     Indication: SINUSITIS
     Dates: start: 20071224, end: 20080106

REACTIONS (21)
  - ARTHRALGIA [None]
  - CHOKING [None]
  - DISTURBANCE IN ATTENTION [None]
  - DIZZINESS [None]
  - EAR DISCOMFORT [None]
  - EXERCISE TOLERANCE DECREASED [None]
  - FATIGUE [None]
  - HEADACHE [None]
  - IMPAIRED WORK ABILITY [None]
  - INTRACRANIAL PRESSURE INCREASED [None]
  - LOCAL SWELLING [None]
  - LUMBAR PUNCTURE ABNORMAL [None]
  - MUSCULOSKELETAL PAIN [None]
  - MUSCULOSKELETAL STIFFNESS [None]
  - MYALGIA [None]
  - NECK PAIN [None]
  - PAIN IN EXTREMITY [None]
  - PAPILLOEDEMA [None]
  - SWELLING FACE [None]
  - THERAPEUTIC AGENT TOXICITY [None]
  - URINARY TRACT INFECTION [None]
